FAERS Safety Report 15757519 (Version 1)
Quarter: 2018Q4

REPORT INFORMATION
  Report Type: Spontaneous
  Country: US (occurrence: US)
  Receive Date: 20181224
  Receipt Date: 20181224
  Transmission Date: 20190205
  Serious: No
  Sender: FDA-Public Use
  Company Number: US-TEIKOKU PHARMA USA-TPU2018-00871

PATIENT
  Age: 90 Year
  Sex: Female

DRUGS (1)
  1. LIDOCAINE PATCH [Suspect]
     Active Substance: LIDOCAINE
     Indication: OSTEOARTHRITIS
     Dosage: PRESCRIPTION ORDER STATES TO APPLY 1 PATCH ON EACH KNEE.
     Route: 061

REACTIONS (3)
  - Malaise [Unknown]
  - Vomiting [Unknown]
  - Fatigue [Unknown]
